FAERS Safety Report 10045786 (Version 2)
Quarter: 2014Q2

REPORT INFORMATION
  Report Type: Spontaneous
  Country: JP (occurrence: JP)
  Receive Date: 20140328
  Receipt Date: 20140425
  Transmission Date: 20141212
  Serious: Yes (Death, Life-Threatening)
  Sender: FDA-Public Use
  Company Number: JP-009507513-1403JPN012207

PATIENT
  Age: 65 Year
  Sex: Male
  Weight: 62 kg

DRUGS (4)
  1. CANCIDAS FOR INTRAVENOUS DRIP INFUSION 70MG [Suspect]
     Indication: SYSTEMIC CANDIDA
     Dosage: 70 MG, QD
     Dates: start: 20131228, end: 20131228
  2. CANCIDAS FOR INTRAVENOUS DRIP INFUSION 50MG [Suspect]
     Indication: SYSTEMIC CANDIDA
     Dosage: 50 MG, QD
     Route: 041
     Dates: start: 20131229, end: 20140110
  3. OMEPRAL [Concomitant]
     Indication: GASTRODUODENAL ULCER
     Dosage: 200 MG, BID
     Route: 051
     Dates: start: 20131226, end: 20140110
  4. NEUART [Concomitant]
     Indication: DISSEMINATED INTRAVASCULAR COAGULATION
     Dosage: 30 ML, QD
     Route: 051
     Dates: start: 20131228, end: 20131229

REACTIONS (3)
  - Hepatic failure [Fatal]
  - Disseminated intravascular coagulation [Fatal]
  - Biliary tract infection [Fatal]
